FAERS Safety Report 21659921 (Version 2)
Quarter: 2023Q4

REPORT INFORMATION
  Report Type: Spontaneous
  Country: GB (occurrence: GB)
  Receive Date: 20221130
  Receipt Date: 20231122
  Transmission Date: 20240110
  Serious: Yes (Other)
  Sender: FDA-Public Use
  Company Number: GB-TEVA-2022-GB-2830777

PATIENT
  Age: 19 Year
  Sex: Female

DRUGS (8)
  1. VINCRISTINE [Suspect]
     Active Substance: VINCRISTINE
     Indication: Glioblastoma multiforme
     Dosage: SINGLE DOSE OF VINCRISTINE 1.5 MG/M2 ON THE DAY 1 IN 6 WEEKLY CYCLES
     Route: 042
  2. DABRAFENIB [Suspect]
     Active Substance: DABRAFENIB
     Indication: Glioblastoma multiforme
     Dosage: DABRAFENIB 300 MG DAILY IN 28-DAY CYCLES
     Route: 048
  3. DABRAFENIB [Suspect]
     Active Substance: DABRAFENIB
     Indication: Glioblastoma multiforme
     Route: 065
  4. PROCARBAZINE [Suspect]
     Active Substance: PROCARBAZINE
     Indication: Glioblastoma multiforme
     Dosage: PROCARBAZINE 100 MG/M2 DAILY FOR 10 DAYS IN 6 WEEKLY CYCLES
     Route: 048
  5. LOMUSTINE [Suspect]
     Active Substance: LOMUSTINE
     Indication: Glioblastoma multiforme
     Dosage: SINGLE DOSE OF LOMUSTINE 100 MG/M2 ON THE DAY 1 IN 6 WEEKLY CYCLES
     Route: 048
  6. TRAMETINIB [Suspect]
     Active Substance: TRAMETINIB
     Indication: Glioblastoma multiforme
     Dosage: TRAMETINIB 2 MG DAILY IN 28-DAY CYCLES
     Route: 065
  7. TRAMETINIB [Suspect]
     Active Substance: TRAMETINIB
     Indication: Glioblastoma multiforme
     Route: 065
  8. TEMOZOLOMIDE [Suspect]
     Active Substance: TEMOZOLOMIDE
     Indication: Glioblastoma multiforme
     Dosage: 75 MG/M2 DAILY;
     Route: 065

REACTIONS (6)
  - Rash [Recovered/Resolved]
  - Liver function test abnormal [Recovered/Resolved]
  - Hepatitis [Unknown]
  - Neutropenia [Unknown]
  - Drug ineffective [Unknown]
  - Off label use [Unknown]
